FAERS Safety Report 6154098-3 (Version None)
Quarter: 2009Q2

REPORT INFORMATION
  Report Type: 
  Country: None (occurrence: None)
  Receive Date: 20090414
  Receipt Date: 20090409
  Transmission Date: 20091009
  Serious: Yes (Death)
  Sender: FDA-Public Use
  Company Number: FR-ROCHE-626986

PATIENT
  Age: 85 Year
  Sex: Female
  Weight: 85 kg

DRUGS (1)
  1. ROCEPHIN [Suspect]
     Dosage: ROUTE REPORTED AS IM AND IV AND FREQUENCY AS DAILY.
     Route: 065

REACTIONS (2)
  - ANAPHYLACTIC SHOCK [None]
  - DEATH [None]
